FAERS Safety Report 10469463 (Version 1)
Quarter: 2014Q3

REPORT INFORMATION
  Report Type: Spontaneous
  Country: US (occurrence: None)
  Receive Date: 20140919
  Receipt Date: 20140919
  Transmission Date: 20150326
  Serious: Yes (Hospitalization, Other)
  Sender: FDA-Public Use
  Company Number: ADR-2014-01698

PATIENT
  Age: 26 Month
  Sex: Male

DRUGS (9)
  1. GABAPENTIN. [Suspect]
     Active Substance: GABAPENTIN
  2. CYCLOBENZAPRINE [Suspect]
     Active Substance: CYCLOBENZAPRINE
  3. MENTHOL 1% [Suspect]
     Active Substance: MENTHOL
  4. NIFEDIPINE. [Suspect]
     Active Substance: NIFEDIPINE
  5. BUPIVACAINE [Suspect]
     Active Substance: BUPIVACAINE
  6. BACLOFEN. [Suspect]
     Active Substance: BACLOFEN
  7. DICLOFENAC [Suspect]
     Active Substance: DICLOFENAC
  8. CLONIDINE. [Suspect]
     Active Substance: CLONIDINE
  9. KETAMINE [Suspect]
     Active Substance: KETAMINE

REACTIONS (5)
  - Hypotension [None]
  - Irritability [None]
  - Heart rate increased [None]
  - Fatigue [None]
  - Somnolence [None]

NARRATIVE: CASE EVENT DATE: 20140101
